FAERS Safety Report 5086126-0 (Version None)
Quarter: 2006Q3

REPORT INFORMATION
  Report Type: 
  Country: None (occurrence: None)
  Receive Date: 20060818
  Receipt Date: 20060810
  Transmission Date: 20061208
  Serious: Yes (Other)
  Sender: FDA-Public Use
  Company Number: 2006080738

PATIENT
  Age: 30 Year
  Sex: Male

DRUGS (3)
  1. CETIRIZINE HCL [Suspect]
     Indication: SEASONAL ALLERGY
     Dosage: (1 IN 1 D), ORAL
     Route: 048
  2. REACTINE DUO (PSEUDOEPHEDRINE, CETIRIZINE) [Suspect]
     Indication: SEASONAL ALLERGY
     Dosage: (1 IN 1 D), ORAL
     Route: 048
  3. .. [Concomitant]

REACTIONS (2)
  - ASTHMA [None]
  - LUNG DISORDER [None]
